FAERS Safety Report 14730528 (Version 1)
Quarter: 2018Q2

REPORT INFORMATION
  Report Type: Spontaneous
  Country: PR (occurrence: PR)
  Receive Date: 20180402
  Receipt Date: 20180402
  Transmission Date: 20180711
  Serious: No
  Sender: FDA-Public Use
  Company Number: None

PATIENT
  Age: 85 Year
  Sex: Male
  Weight: 51.75 kg

DRUGS (1)
  1. VANCOMYCIN [Suspect]
     Active Substance: VANCOMYCIN
     Route: 042
     Dates: start: 20180320, end: 20180320

REACTIONS (5)
  - Vomiting [None]
  - Rash [None]
  - Pruritus [None]
  - Generalised erythema [None]
  - Discomfort [None]

NARRATIVE: CASE EVENT DATE: 20180320
